FAERS Safety Report 7042230-9 (Version None)
Quarter: 2010Q4

REPORT INFORMATION
  Report Type: 
  Country: None (occurrence: None)
  Receive Date: 20101013
  Receipt Date: 20100930
  Transmission Date: 20110411
  Serious: Yes (Other)
  Sender: FDA-Public Use
  Company Number: US-WATSON-2010-13153

PATIENT
  Age: 53 Year
  Sex: Female
  Weight: 59.9 kg

DRUGS (2)
  1. NICOTINE POLACRILEX (WATSON LABORATORIES) [Suspect]
     Indication: SMOKING CESSATION THERAPY
     Dosage: 1 PIECE X 1
     Route: 002
     Dates: start: 20100901, end: 20100901
  2. NICOTINE [Suspect]
     Indication: SMOKING CESSATION THERAPY
     Dosage: 1 PATCH Q 24 HOURS
     Route: 062
     Dates: start: 20100901, end: 20100901

REACTIONS (3)
  - ALCOHOLISM [None]
  - DEPRESSION [None]
  - SUICIDAL IDEATION [None]
